FAERS Safety Report 8285294-7 (Version None)
Quarter: 2012Q2

REPORT INFORMATION
  Report Type: 
  Country: None (occurrence: None)
  Receive Date: 20120413
  Receipt Date: 20120329
  Transmission Date: 20120825
  Serious: Yes (Other)
  Sender: FDA-Public Use
  Company Number: CHPA2012US006299

PATIENT
  Age: 87 Year
  Sex: Male

DRUGS (10)
  1. BENEFIBER W/ WHEAT DEXTRIN [Suspect]
     Indication: DIARRHOEA
     Dosage: UNK, UNK
     Route: 048
     Dates: start: 20080101, end: 20080101
  2. BENEFIBER W/ WHEAT DEXTRIN [Suspect]
     Dosage: UNK, UNK
     Route: 048
     Dates: start: 20120330
  3. CILOSTAZOL [Concomitant]
     Indication: DEPRESSION
     Dosage: 100 MG, UNK
     Dates: start: 20060101
  4. SERTRALINE HYDROCHLORIDE [Concomitant]
     Indication: DEPRESSION
     Dosage: 50 MG, QD
     Dates: start: 20120201
  5. SIMVASTATIN [Concomitant]
     Dosage: 40 MG, UNK
     Dates: start: 20060101
  6. RANITIDINE [Concomitant]
     Dosage: 150 MG, UNK
  7. DONEPEZIL HCL [Concomitant]
     Indication: DEPRESSION
     Dosage: 10 MG, UNK
  8. OMEPRAZOLE [Concomitant]
     Dosage: 1 DF, UNK
  9. LISINOPRIL [Concomitant]
     Dosage: 200 MG, BID
     Dates: start: 20060101
  10. METRONIDAZOLE [Concomitant]
     Dosage: 500 MG, UNK

REACTIONS (8)
  - NECK PAIN [None]
  - OFF LABEL USE [None]
  - DEPRESSION [None]
  - VISION BLURRED [None]
  - URINE COLOUR ABNORMAL [None]
  - THERAPEUTIC RESPONSE UNEXPECTED [None]
  - PAIN IN EXTREMITY [None]
  - INTERVERTEBRAL DISC PROTRUSION [None]
